FAERS Safety Report 7250202-4 (Version None)
Quarter: 2011Q1

REPORT INFORMATION
  Report Type: 
  Country: None (occurrence: None)
  Receive Date: 20110128
  Receipt Date: 20100526
  Transmission Date: 20110831
  Serious: Yes (Hospitalization, Other)
  Sender: FDA-Public Use
  Company Number: US-BAYER-201017028NA

PATIENT
  Sex: Female
  Weight: 53.968 kg

DRUGS (4)
  1. YASMIN [Suspect]
     Indication: CONTRACEPTION
     Dosage: UNK
     Dates: start: 20080801, end: 20090901
  2. YAZ [Suspect]
     Indication: CONTRACEPTION
     Route: 048
     Dates: start: 20080801, end: 20090901
  3. TRAMADOL HCL [Concomitant]
     Indication: BACK PAIN
     Dosage: UNK
     Dates: start: 20090401
  4. NEXIUM [Concomitant]
     Indication: DYSPEPSIA
     Dosage: UNK
     Dates: start: 20090401

REACTIONS (3)
  - GALLBLADDER CHOLESTEROLOSIS [None]
  - CHOLECYSTITIS [None]
  - ABDOMINAL PAIN [None]
